FAERS Safety Report 15652748 (Version 2)
Quarter: 2018Q4

REPORT INFORMATION
  Report Type: Spontaneous
  Country: US (occurrence: US)
  Receive Date: 20181123
  Receipt Date: 20181217
  Transmission Date: 20190205
  Serious: No
  Sender: FDA-Public Use
  Company Number: US-NOVOPROD-585289

PATIENT
  Age: 12 Year
  Sex: Female

DRUGS (2)
  1. NOVOLOG [Suspect]
     Active Substance: INSULIN ASPART
     Indication: PRODUCT USED FOR UNKNOWN INDICATION
     Dosage: 0.5U: 7G CARBS + 0.5U: 25}120
     Route: 058
     Dates: start: 201801, end: 20180702
  2. LEVEMIR [Suspect]
     Active Substance: INSULIN DETEMIR
     Indication: PRODUCT USED FOR UNKNOWN INDICATION
     Dosage: 18 U, QD
     Route: 058
     Dates: start: 201801, end: 20180702

REACTIONS (3)
  - Peripheral swelling [Recovered/Resolved]
  - Abdominal pain upper [Unknown]
  - Hypoaesthesia [Unknown]
